FAERS Safety Report 16475415 (Version 2)
Quarter: 2019Q3

REPORT INFORMATION
  Report Type: Report from Study
  Country: EG (occurrence: EG)
  Receive Date: 20190625
  Receipt Date: 20190704
  Transmission Date: 20191004
  Serious: Yes (Death, Hospitalization)
  Sender: FDA-Public Use
  Company Number: PHHY2019EG145318

PATIENT
  Age: 25 Year
  Sex: Female

DRUGS (2)
  1. BRADIPECT [Concomitant]
     Indication: PRODUCT USED FOR UNKNOWN INDICATION
     Dosage: 7.5 MG, UNK
     Dates: end: 20190618
  2. ENTRESTO [Suspect]
     Active Substance: SACUBITRIL\VALSARTAN
     Indication: CARDIAC FAILURE
     Dosage: 50 MG, (SACUBITRIL 24 MG/ VALSARTAN 26 MG) BID
     Route: 048
     Dates: start: 20190509

REACTIONS (2)
  - Hypotension [Fatal]
  - Fluid retention [Fatal]

NARRATIVE: CASE EVENT DATE: 20190618
